FAERS Safety Report 6603346-1 (Version None)
Quarter: 2010Q1

REPORT INFORMATION
  Report Type: 
  Country: None (occurrence: None)
  Receive Date: 20100226
  Receipt Date: 20090218
  Transmission Date: 20100710
  Serious: No
  Sender: FDA-Public Use
  Company Number: A0769321A

PATIENT
  Sex: Male

DRUGS (10)
  1. VALTREX [Suspect]
     Indication: HERPES ZOSTER
     Dosage: 1000MG TWICE PER DAY
     Route: 048
     Dates: start: 20090207
  2. GEMFIBROZIL [Concomitant]
  3. LOPID [Concomitant]
  4. ALOPURINOL [Concomitant]
  5. ZOCOR [Concomitant]
  6. LASIX [Concomitant]
  7. PLAVIX [Concomitant]
  8. GLIPIZIDE [Concomitant]
  9. DIOVAN [Concomitant]
  10. CARVEDILOL [Concomitant]

REACTIONS (2)
  - ILL-DEFINED DISORDER [None]
  - PRURITUS [None]
